FAERS Safety Report 24915305 (Version 1)
Quarter: 2025Q1

REPORT INFORMATION
  Report Type: Other
  Country: CN (occurrence: CN)
  Receive Date: 20250203
  Receipt Date: 20250203
  Transmission Date: 20250409
  Serious: Yes (Other)
  Sender: QILU PHARMACEUTICAL (HAINAN) CO., LTD.
  Company Number: CN-QILU PHARMACEUTICAL (HAINAN) CO.  LTD.-QLH-000015-2025

PATIENT
  Age: 74 Year
  Sex: Female
  Weight: 45 kg

DRUGS (10)
  1. IRINOTECAN HYDROCHLORIDE [Suspect]
     Active Substance: IRINOTECAN HYDROCHLORIDE
     Indication: Rectal adenocarcinoma
     Dosage: 170 MG ONCE DAILY ON DAY 1 (D1)
     Route: 041
     Dates: start: 20250109, end: 20250109
  2. BEVACIZUMAB [Suspect]
     Active Substance: BEVACIZUMAB
     Indication: Rectal adenocarcinoma
     Dosage: 200 MG ONCE DAILY ON DAY 1 (D1)
     Route: 041
     Dates: start: 20250109, end: 20250109
  3. FLUOROURACIL [Suspect]
     Active Substance: FLUOROURACIL
     Indication: Rectal adenocarcinoma
     Dosage: 0.38 G ONCE DAILY ON DAY 1 (D1)
     Route: 042
     Dates: start: 20250109, end: 20250109
  4. FLUOROURACIL [Suspect]
     Active Substance: FLUOROURACIL
     Dosage: 2.25 G ONCE DAILY
     Route: 050
     Dates: start: 20250109, end: 20250109
  5. LEUCOVORIN CALCIUM [Suspect]
     Active Substance: LEUCOVORIN CALCIUM
     Indication: Rectal adenocarcinoma
     Dosage: 375 MG ONCE DAILY ON DAY 1 (D1)
     Route: 041
     Dates: start: 20250109, end: 20250109
  6. SODIUM CHLORIDE [Concomitant]
     Active Substance: SODIUM CHLORIDE
     Dosage: 100 ML ONCE DAILY
     Route: 041
     Dates: start: 20250109, end: 20250109
  7. SODIUM CHLORIDE [Concomitant]
     Active Substance: SODIUM CHLORIDE
     Dosage: 250 ML ONCE DAILY
     Route: 041
     Dates: start: 20250109, end: 20250109
  8. SODIUM CHLORIDE [Concomitant]
     Active Substance: SODIUM CHLORIDE
     Dosage: 250 ML ONCE DAILY
     Route: 041
     Dates: start: 20250109, end: 20250109
  9. SODIUM CHLORIDE [Concomitant]
     Active Substance: SODIUM CHLORIDE
     Dosage: 20 ML ONCE DAILY
     Route: 042
     Dates: start: 20250109, end: 20250109
  10. SODIUM CHLORIDE [Concomitant]
     Active Substance: SODIUM CHLORIDE
     Dosage: 140 ML ONCE DAILY
     Route: 042
     Dates: start: 20250109, end: 20250109

REACTIONS (1)
  - Hypertension [Recovered/Resolved]

NARRATIVE: CASE EVENT DATE: 20250109
